FAERS Safety Report 8941526 (Version 3)
Quarter: 2013Q1

REPORT INFORMATION
  Report Type: Spontaneous
  Country: IE (occurrence: IE)
  Receive Date: 20121203
  Receipt Date: 20130128
  Transmission Date: 20140127
  Serious: Yes (Hospitalization)
  Sender: FDA-Public Use
  Company Number: IE-PFIZER INC-2012238491

PATIENT
  Age: 50 Year
  Sex: Male
  Weight: 70 kg

DRUGS (6)
  1. CELEBREX [Suspect]
     Indication: ANALGESIC INTERVENTION SUPPORTIVE THERAPY
     Dosage: 200 MG, DAILY
     Route: 048
     Dates: start: 20120730, end: 20120809
  2. RENAGEL [Concomitant]
     Indication: RENAL FAILURE
     Dosage: 13 TABLETS UNK, 1X/DAY
     Route: 048
     Dates: start: 20090318
  3. FOLIC ACID [Concomitant]
     Dosage: 5 MG, 1X/DAY
     Route: 048
     Dates: start: 2012
  4. SELECTOL [Concomitant]
     Dosage: 200 MG, 1X/DAY
     Route: 048
     Dates: start: 199801
  5. LIPITOR [Concomitant]
     Indication: BLOOD CHOLESTEROL INCREASED
     Dosage: 20 MG, 1 AT NIGHT
     Route: 048
     Dates: start: 200302
  6. OROVITE [Concomitant]
     Indication: VITAMIN SUPPLEMENTATION
     Dosage: 2 TABLETS, 1X/DAY
     Route: 048

REACTIONS (4)
  - Dizziness [Recovering/Resolving]
  - Paraesthesia [Recovering/Resolving]
  - Pain in extremity [Recovering/Resolving]
  - Tremor [Recovering/Resolving]
